FAERS Safety Report 23351840 (Version 2)
Quarter: 2024Q1

REPORT INFORMATION
  Report Type: Report from Study
  Country: TW (occurrence: TW)
  Receive Date: 20231229
  Receipt Date: 20240125
  Transmission Date: 20240409
  Serious: Yes (Other)
  Sender: FDA-Public Use
  Company Number: TW-GILEAD-2023-0656840

PATIENT
  Age: 73 Year
  Sex: Female
  Weight: 74.2 kg

DRUGS (1)
  1. SACITUZUMAB GOVITECAN-HZIY [Suspect]
     Active Substance: SACITUZUMAB GOVITECAN-HZIY
     Indication: Triple negative breast cancer
     Dosage: 180 MG
     Route: 042
     Dates: start: 20231108

REACTIONS (3)
  - Breast cancer [Unknown]
  - Breast mass [Unknown]
  - Cancer fatigue [Unknown]
